FAERS Safety Report 21080477 (Version 1)
Quarter: 2022Q3

REPORT INFORMATION
  Report Type: Spontaneous
  Country: US (occurrence: US)
  Receive Date: 20220714
  Receipt Date: 20220714
  Transmission Date: 20221026
  Serious: No
  Sender: FDA-Public Use
  Company Number: US-RECKITT BENCKISER HEALTHCARE INT LIMITED-RB-97840-2021

PATIENT
  Age: 68 Year
  Sex: Female

DRUGS (1)
  1. MUCINEX FAST-MAX DM MAX HONEY AND BERRY FLAVOR [Suspect]
     Active Substance: DEXTROMETHORPHAN HYDROBROMIDE\GUAIFENESIN
     Indication: Respiratory tract congestion
     Dosage: 20 MILLILITER, EVERY FOUR HOURS
     Route: 065
     Dates: start: 20211008

REACTIONS (1)
  - Dyspepsia [Not Recovered/Not Resolved]

NARRATIVE: CASE EVENT DATE: 20211009
